FAERS Safety Report 9110549 (Version 1)
Quarter: 2013Q1

REPORT INFORMATION
  Report Type: Spontaneous
  Country: US (occurrence: US)
  Receive Date: 20130219
  Receipt Date: 20130219
  Transmission Date: 20140127
  Serious: No
  Sender: FDA-Public Use
  Company Number: US-BRACCO-008438

PATIENT
  Age: 75 Year
  Sex: Female

DRUGS (2)
  1. ISOVUE 300 [Suspect]
     Indication: UROGRAM
     Route: 042
     Dates: start: 20120801, end: 20120801
  2. ISOVUE 300 [Suspect]
     Indication: PRODUCT USED FOR UNKNOWN INDICATION
     Route: 042
     Dates: start: 20120801, end: 20120801

REACTIONS (6)
  - Blood pressure increased [Recovered/Resolved]
  - Mental status changes [Recovered/Resolved]
  - Urinary incontinence [Recovered/Resolved]
  - Flushing [Recovered/Resolved]
  - Urticaria [Recovered/Resolved]
  - Pruritus [Recovered/Resolved]
